FAERS Safety Report 7426070-4 (Version None)
Quarter: 2011Q2

REPORT INFORMATION
  Report Type: 
  Country: None (occurrence: None)
  Receive Date: 20110420
  Receipt Date: 20110413
  Transmission Date: 20111010
  Serious: Yes (Death, Other)
  Sender: FDA-Public Use
  Company Number: AT-ROCHE-770161

PATIENT
  Sex: Male

DRUGS (5)
  1. LINEZOLID [Concomitant]
     Dosage: REPORTED AS: ZYVOSID
  2. RATIOGRASTIM [Concomitant]
     Dosage: REPORTED AS: RATIOGASTRIM. DOSE: 48 MIO IE.
  3. ZIENAM [Concomitant]
  4. XELODA [Suspect]
     Route: 065
     Dates: start: 20110211, end: 20110224
  5. CANCIDAS [Concomitant]

REACTIONS (6)
  - RASH [None]
  - PALMAR-PLANTAR ERYTHRODYSAESTHESIA SYNDROME [None]
  - THROMBOCYTOPENIA [None]
  - SEPSIS [None]
  - STOMATITIS [None]
  - PANCYTOPENIA [None]
